FAERS Safety Report 8838011 (Version 2)
Quarter: 2015Q3

REPORT INFORMATION
  Report Type: Report from Study
  Country: US (occurrence: US)
  Receive Date: 20121012
  Receipt Date: 20150811
  Transmission Date: 20151125
  Serious: Yes (Other)
  Sender: FDA-Public Use
  Company Number: US-ROCHE-1138964

PATIENT
  Sex: Female
  Weight: 24.4 kg

DRUGS (4)
  1. PROTROPIN [Suspect]
     Active Substance: SOMATREM
     Indication: HYPOTHALAMO-PITUITARY DISORDER
     Route: 058
     Dates: start: 19880411
  2. PROTROPIN [Suspect]
     Active Substance: SOMATREM
     Route: 058
  3. PROTROPIN [Suspect]
     Active Substance: SOMATREM
     Route: 058
  4. PROTROPIN [Suspect]
     Active Substance: SOMATREM
     Route: 058

REACTIONS (2)
  - Malnutrition [Unknown]
  - Obstructive airways disorder [Unknown]
